FAERS Safety Report 7525058-2 (Version None)
Quarter: 2011Q2

REPORT INFORMATION
  Report Type: 
  Country: None (occurrence: None)
  Receive Date: 20110606
  Receipt Date: 20110523
  Transmission Date: 20111010
  Serious: Yes (Hospitalization)
  Sender: FDA-Public Use
  Company Number: US-ELI_LILLY_AND_COMPANY-US201104002020

PATIENT
  Sex: Female

DRUGS (12)
  1. FORTEO [Suspect]
     Indication: OSTEOPOROSIS
     Dosage: 20 UG, QD
     Route: 065
     Dates: start: 20100101
  2. AGGRENOX [Concomitant]
  3. ROBAXIN [Concomitant]
     Dosage: 500 MG, UNK
  4. CIPROFLOXACIN [Concomitant]
     Dosage: 500 MG, UNK
  5. STOOL SOFTENER [Concomitant]
     Dosage: 100 MG, UNK
  6. VITAMIN D [Concomitant]
     Dosage: 50000 U, UNK
  7. CYMBALTA [Concomitant]
     Dosage: 60 MG, UNK
  8. HYDROCODONE BITARTRATE [Concomitant]
  9. GABAPENTIN [Concomitant]
     Dosage: 100 MG, UNK
  10. FUROSEMIDE [Concomitant]
     Dosage: 40 MG, UNK
  11. METFORMIN HCL [Concomitant]
     Dosage: 500 MG, UNK
  12. LEVOTHYROXINE SODIUM [Concomitant]
     Dosage: 125 MG, UNK

REACTIONS (1)
  - THORACIC VERTEBRAL FRACTURE [None]
